FAERS Safety Report 5313905-4 (Version None)
Quarter: 2007Q2

REPORT INFORMATION
  Report Type: 
  Country: None (occurrence: None)
  Receive Date: 20070501
  Receipt Date: 20070424
  Transmission Date: 20071010
  Serious: Yes (Hospitalization)
  Sender: FDA-Public Use
  Company Number: FR-JNJFOC-20070406066

PATIENT
  Sex: Female

DRUGS (8)
  1. ACETAMINOPHEN AND TRAMADOL HCL [Suspect]
     Indication: ERYSIPELAS
     Route: 048
  2. LOVENOX [Concomitant]
     Indication: ERYSIPELAS
     Route: 058
  3. AUGMENTIN '125' [Concomitant]
     Route: 065
  4. BEPRIDIL [Concomitant]
     Route: 065
  5. TAREG [Concomitant]
     Route: 065
  6. LOXEN [Concomitant]
     Route: 065
  7. VASTAREL [Concomitant]
     Route: 065
  8. LIPANTHYL [Concomitant]
     Route: 065

REACTIONS (2)
  - RASH [None]
  - VASCULAR PURPURA [None]
